FAERS Safety Report 4884701-7 (Version None)
Quarter: 2006Q1

REPORT INFORMATION
  Report Type: 
  Country: None (occurrence: None)
  Receive Date: 20060117
  Receipt Date: 20060105
  Transmission Date: 20060701
  Serious: Yes (Other)
  Sender: FDA-Public Use
  Company Number: 2005169960

PATIENT

DRUGS (1)
  1. ZYVOX [Suspect]
     Indication: OSTEOMYELITIS
     Dosage: 1200 MG (600 MG, 2 IN 1 D), ORAL
     Route: 048
     Dates: start: 20051201, end: 20051201

REACTIONS (5)
  - DIALYSIS [None]
  - EOSINOPHILIA [None]
  - NEPHRITIS INTERSTITIAL [None]
  - RASH [None]
  - RENAL FAILURE [None]
